FAERS Safety Report 5717955-5 (Version None)
Quarter: 2008Q2

REPORT INFORMATION
  Report Type: 
  Country: None (occurrence: None)
  Receive Date: 20080425
  Receipt Date: 20080418
  Transmission Date: 20081010
  Serious: Yes (Hospitalization)
  Sender: FDA-Public Use
  Company Number: A0707922B

PATIENT
  Age: 35 Year
  Sex: Female
  Weight: 65 kg

DRUGS (2)
  1. LAPATINIB [Suspect]
     Indication: CERVIX CARCINOMA
     Dosage: 1500MG PER DAY
     Route: 048
     Dates: start: 20071026
  2. PARACETAMOL [Concomitant]
     Indication: PAIN
     Dosage: 1000MG FOUR TIMES PER DAY
     Route: 048
     Dates: start: 20080303

REACTIONS (4)
  - ANAEMIA [None]
  - COLITIS [None]
  - DIARRHOEA [None]
  - DISEASE PROGRESSION [None]
